FAERS Safety Report 24342495 (Version 3)
Quarter: 2024Q4

REPORT INFORMATION
  Report Type: Spontaneous
  Country: DE (occurrence: DE)
  Receive Date: 20240920
  Receipt Date: 20241225
  Transmission Date: 20250114
  Serious: Yes (Hospitalization, Other)
  Sender: CELLTRION
  Company Number: DE-CELLTRION INC.-2024DE013866

PATIENT

DRUGS (33)
  1. INFLIXIMAB [Suspect]
     Active Substance: INFLIXIMAB
     Indication: Axial spondyloarthritis
     Dosage: 400 MG, EVERY 2 WEEKS; VISIT/DATE OF T09: 2023-05-03, T10: 2023-08-25, AND T11: 2023-12-08
     Route: 042
     Dates: start: 20230419
  2. IBUPROFEN [Concomitant]
     Active Substance: IBUPROFEN
     Dosage: 600 MG 7 DAYS PER WEEK ; T03: 2020-01-13, T04: 2020-11-25, T05: 2021-05-20, T06: 2021-08-26, T07: 20
     Dates: start: 20191105
  3. IBUPROFEN [Concomitant]
     Active Substance: IBUPROFEN
     Dosage: 600 MG; T00: 2019-02-18
  4. IBUPROFEN [Concomitant]
     Active Substance: IBUPROFEN
     Dosage: 600 MG; T01: 2019-05-20
     Dates: start: 20180615, end: 20190310
  5. CELECOXIB [Concomitant]
     Active Substance: CELECOXIB
     Dosage: 200MG 1 DAY PER WEEK; T01 - T11
     Dates: start: 20190311
  6. METHOTREXATE SODIUM [Concomitant]
     Active Substance: METHOTREXATE SODIUM
     Dosage: 10 MG, PER WEEK; T03: 2020-01-13, T04: 2020-11-25, T05: 2021-05-20, T06: 2021-08-26, T07: 2022-02-18
     Route: 058
     Dates: start: 20191105
  7. METHOTREXATE SODIUM [Concomitant]
     Active Substance: METHOTREXATE SODIUM
     Dosage: 10 MG; T01: 2019-05-20
     Route: 058
     Dates: start: 20190520
  8. METHOTREXATE SODIUM [Concomitant]
     Active Substance: METHOTREXATE SODIUM
     Dosage: 10 MG; T02: 2019-09-23
     Route: 058
     Dates: start: 20190520, end: 20190520
  9. BISOPROLOL [Concomitant]
     Active Substance: BISOPROLOL
     Dosage: 5 MG
  10. LEVOTHYROXINE [Concomitant]
     Active Substance: LEVOTHYROXINE
     Dosage: 75 MICROGRAM
  11. PANTOPRAZOLE [Concomitant]
     Active Substance: PANTOPRAZOLE
     Dosage: 40 MG
  12. PROGESTERONE [Concomitant]
     Active Substance: PROGESTERONE
     Dosage: 200 MG
  13. ESTRADIOL [Concomitant]
     Active Substance: ESTRADIOL
     Dosage: 0.075 MG/D
  14. ESTRADIOL [Concomitant]
     Active Substance: ESTRADIOL
     Dosage: 0.075 MG/D
  15. ESTRIOL [Concomitant]
     Active Substance: ESTRIOL
     Dosage: 1 MG
  16. MIRABEGRON [Concomitant]
     Active Substance: MIRABEGRON
     Dosage: 50 MG
  17. MOVICOL [Concomitant]
     Active Substance: POLYETHYLENE GLYCOL 3350\POTASSIUM CHLORIDE\SODIUM BICARBONATE\SODIUM CHLORIDE
  18. MEBEVERINE [Concomitant]
     Active Substance: MEBEVERINE
     Dosage: 200 MG
  19. CHOLECALCIFEROL [Concomitant]
     Active Substance: CHOLECALCIFEROL
     Dosage: 1000IE
  20. SERTRALINE [Concomitant]
     Active Substance: SERTRALINE HYDROCHLORIDE
     Dosage: 100 MG
  21. QUETIAPINE [Concomitant]
     Active Substance: QUETIAPINE
     Dosage: 25 MG
  22. OPIPRAMOL [Concomitant]
     Active Substance: OPIPRAMOL
     Dosage: 50 MG
  23. BUPRENORPHINE [Concomitant]
     Active Substance: BUPRENORPHINE
     Dosage: 10UG/H
  24. BUPRENORPHINE [Concomitant]
     Active Substance: BUPRENORPHINE
     Dosage: 0.2 MG
  25. FOLIC ACID [Concomitant]
     Active Substance: FOLIC ACID
  26. ALBUTEROL [Concomitant]
     Active Substance: ALBUTEROL
     Dosage: 0.1 MG
  27. BUDESONIDE [Concomitant]
     Active Substance: BUDESONIDE
     Dosage: 0.4 MG
  28. ENOXAPARIN [Concomitant]
     Active Substance: ENOXAPARIN
     Dosage: AT 80MG/0.8ML
  29. CLARITHROMYCIN [Concomitant]
     Active Substance: CLARITHROMYCIN
     Dosage: 500 MG
  30. CEFPODOXIME [Concomitant]
     Active Substance: CEFPODOXIME
     Dosage: 200 MG
  31. METAMIZOL [Concomitant]
     Active Substance: METAMIZOLE SODIUM
     Dosage: 500 MG
  32. ENBREL [Concomitant]
     Active Substance: ETANERCEPT
     Dosage: 50 MG; T00: 2019-02-18, T01: 2019-05-20, T02: 2019-09-23, T03: 2020-01-13, T04: 2020-11-25, T05: 202
     Dates: start: 20190218
  33. ENBREL [Concomitant]
     Active Substance: ETANERCEPT
     Dosage: 50 MG; T09: 2023-05-03
     Dates: start: 20190218, end: 20220901

REACTIONS (3)
  - Anaemia postoperative [Recovered/Resolved]
  - Osteomyelitis chronic [Recovered/Resolved]
  - Pain [Unknown]

NARRATIVE: CASE EVENT DATE: 20230925
